FAERS Safety Report 7830821-4 (Version None)
Quarter: 2011Q4

REPORT INFORMATION
  Report Type: 
  Country: None (occurrence: None)
  Receive Date: 20111021
  Receipt Date: 20111010
  Transmission Date: 20120403
  Serious: Yes (Death)
  Sender: FDA-Public Use
  Company Number: FR-GLAXOSMITHKLINE-B0753966A

PATIENT
  Sex: Female

DRUGS (11)
  1. RAMIPRIL [Concomitant]
     Dosage: 5MG PER DAY
     Route: 065
  2. LEXOMIL [Concomitant]
     Route: 065
  3. PREVISCAN [Concomitant]
     Route: 065
  4. ETOPOSIDE [Suspect]
     Indication: LUNG NEOPLASM MALIGNANT
     Dosage: 144.8MG CYCLIC
     Route: 042
     Dates: start: 20110808, end: 20110809
  5. ALLOPURINOL [Concomitant]
     Dosage: 300MG PER DAY
     Route: 065
  6. ZOFRAN [Suspect]
     Indication: PREMEDICATION
     Route: 048
     Dates: start: 20110809, end: 20110809
  7. METHYLPREDNISOLONE [Suspect]
     Indication: PREMEDICATION
     Route: 042
     Dates: end: 20110809
  8. DIGOXIN [Concomitant]
     Route: 065
  9. SPIRIVA [Concomitant]
     Route: 065
  10. LASIX [Concomitant]
     Dosage: 250MG IN THE MORNING
     Route: 065
  11. FERROUS SULFATE TAB [Concomitant]
     Route: 065

REACTIONS (2)
  - RESPIRATORY DISTRESS [None]
  - CARDIO-RESPIRATORY ARREST [None]
